FAERS Safety Report 4754259-1 (Version None)
Quarter: 2005Q3

REPORT INFORMATION
  Report Type: 
  Country: None (occurrence: None)
  Receive Date: 20050829
  Receipt Date: 20050817
  Transmission Date: 20060218
  Serious: Yes (Death, Hospitalization, Other)
  Sender: FDA-Public Use
  Company Number: JP-JNJFOC-20040908704

PATIENT
  Sex: Male

DRUGS (8)
  1. LEUSTATIN [Suspect]
     Indication: DIFFUSE LARGE B-CELL LYMPHOMA
  2. ARA-C [Suspect]
     Indication: B-CELL LYMPHOMA
  3. BUSULFAN [Suspect]
     Indication: B-CELL LYMPHOMA
  4. ANTITHYMOCYTE GLOBULIN [Suspect]
     Indication: B-CELL LYMPHOMA
  5. TACROLIMUS HYDRATE [Concomitant]
     Route: 065
  6. METHYLPREDNISOLONE SODIUM SUCCINATE [Concomitant]
     Dosage: DOSE NOT SPECIFIED
  7. METHYLPREDNISOLONE SODIUM SUCCINATE [Concomitant]
  8. METHYLPREDNISOLONE SODIUM SUCCINATE [Concomitant]

REACTIONS (5)
  - B-CELL LYMPHOMA [None]
  - GRAFT VERSUS HOST DISEASE [None]
  - LYMPHOCYTIC INFILTRATION [None]
  - MELAENA [None]
  - NOCARDIOSIS [None]
